FAERS Safety Report 9549636 (Version 1)
Quarter: 2013Q3

REPORT INFORMATION
  Report Type: Spontaneous
  Country: CH (occurrence: CH)
  Receive Date: 20130924
  Receipt Date: 20130924
  Transmission Date: 20140515
  Serious: Yes (Hospitalization, Other)
  Sender: FDA-Public Use
  Company Number: CH-ELI_LILLY_AND_COMPANY-CH201309005377

PATIENT
  Age: 76 Year
  Sex: Male
  Weight: 76 kg

DRUGS (14)
  1. CYMBALTA [Suspect]
     Dosage: 30 MG, QD
     Route: 048
     Dates: start: 201303, end: 20130731
  2. LORAMET [Suspect]
     Dosage: 1 MG, QD
     Route: 048
     Dates: start: 201307, end: 20130731
  3. ZOPICLONE [Concomitant]
     Dosage: UNK, UNKNOWN
     Route: 065
  4. MIRTAZAPINE [Concomitant]
     Dosage: UNK, UNKNOWN
     Route: 065
  5. MARCOUMAR [Concomitant]
     Dosage: 3 MG, UNKNOWN
     Route: 048
  6. PLAVIX [Concomitant]
     Dosage: 75 MG, QD
     Route: 048
  7. CORDARONE [Concomitant]
     Dosage: 200 MG, QD
     Route: 048
  8. CARVEDILOL [Concomitant]
     Dosage: 6.25 MG, BID
     Route: 048
  9. DANCOR [Concomitant]
     Dosage: 10 MG, QD
     Route: 048
  10. PROCORALAN [Concomitant]
     Dosage: 7.5 MG, BID
     Route: 048
  11. CRESTOR [Concomitant]
     Dosage: 20 MG, QD
     Route: 048
  12. ALDACTONE [Concomitant]
     Dosage: 12.5 MG, QD
     Route: 048
  13. NITRIDERM [Concomitant]
     Dosage: 5 MG, QD
     Route: 062
  14. TOREM [Concomitant]
     Dosage: 15 MG, QD
     Route: 048

REACTIONS (8)
  - General physical health deterioration [Unknown]
  - Pubis fracture [Unknown]
  - Femur fracture [Unknown]
  - Somnolence [Recovered/Resolved]
  - Fall [Recovered/Resolved]
  - Fall [Unknown]
  - Inflammation [Unknown]
  - Decreased appetite [Recovered/Resolved]
